FAERS Safety Report 5033445-X (Version None)
Quarter: 2006Q2

REPORT INFORMATION
  Report Type: 
  Country: None (occurrence: None)
  Receive Date: 20060621
  Receipt Date: 20060609
  Transmission Date: 20061013
  Serious: Yes (Other)
  Sender: FDA-Public Use
  Company Number: 226180

PATIENT
  Age: 18 Year
  Sex: Male
  Weight: 70.9 kg

DRUGS (5)
  1. NUTROPIN AQ [Suspect]
     Indication: GROWTH HORMONE DEFICIENCY
     Dosage: 3.3 MG, 7/WEEK, SUBCUTANEOUS
     Route: 058
     Dates: start: 20020731
  2. CORTEF [Concomitant]
  3. FLUBENDAZOLE (FLUBENDAZOLE) [Concomitant]
  4. SYNTHROID [Concomitant]
  5. DEPO TESTOSTERONE (TESTOSTERONE CYPIONATE) [Concomitant]

REACTIONS (2)
  - CONDITION AGGRAVATED [None]
  - RENAL CYST [None]
